FAERS Safety Report 9473314 (Version 2)
Quarter: 2013Q3

REPORT INFORMATION
  Report Type: Spontaneous
  Country: US (occurrence: US)
  Receive Date: 20130823
  Receipt Date: 20130823
  Transmission Date: 20140515
  Serious: No
  Sender: FDA-Public Use
  Company Number: US-BRISTOL-MYERS SQUIBB COMPANY-18884890

PATIENT
  Age: 59 Year
  Sex: Female

DRUGS (1)
  1. SPRYCEL [Suspect]
     Dosage: INITIAL DOSE=100MG.?DECREASED TO=70MG.AGAIN INCREASED TO=100MG.

REACTIONS (2)
  - Adverse event [Unknown]
  - Weight decreased [Unknown]
